FAERS Safety Report 10656943 (Version 2)
Quarter: 2015Q1

REPORT INFORMATION
  Report Type: Spontaneous
  Country: US (occurrence: None)
  Receive Date: 20141215
  Receipt Date: 20150316
  Transmission Date: 20150720
  Serious: Yes (Death, Hospitalization)
  Sender: FDA-Public Use
  Company Number: 2014US0533

PATIENT
  Age: 76 Year
  Sex: Male
  Weight: 109.77 kg

DRUGS (12)
  1. KINERET [Suspect]
     Active Substance: ANAKINRA
     Route: 058
  2. HEPARIN [Concomitant]
     Active Substance: HEPARIN SODIUM
  3. CITALOPRAM [Concomitant]
     Active Substance: CITALOPRAM HYDROBROMIDE
  4. CRESTOR [Concomitant]
     Active Substance: ROSUVASTATIN CALCIUM
  5. LISINOPRIL/HCTZ (ZESTORETIC) (HYDROCHLOROTHIAZIDE, LISINOPRIL) [Concomitant]
  6. PRADAXA (DABIGATRAN EXTEXILATE MESILATE) [Concomitant]
  7. OMEPRAZOLE. [Concomitant]
     Active Substance: OMEPRAZOLE
  8. JANUVIA [Concomitant]
     Active Substance: SITAGLIPTIN PHOSPHATE
  9. ATENOLOL. [Concomitant]
     Active Substance: ATENOLOL
  10. MIDODRINE [Concomitant]
     Active Substance: MIDODRINE
  11. INSULIN [Concomitant]
     Active Substance: INSULIN NOS
  12. PREDNISONE(PREDNISONE)(PREDNISONE) [Concomitant]
     Active Substance: PREDNISONE

REACTIONS (5)
  - Cardiac failure [None]
  - Condition aggravated [None]
  - Rash [None]
  - Interstitial lung disease [None]
  - Death [None]
